FAERS Safety Report 15354534 (Version 6)
Quarter: 2021Q3

REPORT INFORMATION
  Report Type: Report from Study
  Country: CN (occurrence: CN)
  Receive Date: 20180906
  Receipt Date: 20210712
  Transmission Date: 20211014
  Serious: Yes (Death, Hospitalization)
  Sender: FDA-Public Use
  Company Number: CN-ROCHE-2180012

PATIENT
  Age: 71 Year
  Sex: Female
  Weight: 86 kg

DRUGS (32)
  1. SODIUM CHLORIDE. [Concomitant]
     Active Substance: SODIUM CHLORIDE
     Indication: HYPONATRAEMIA
  2. POTASSIUM CHLORIDE. [Concomitant]
     Active Substance: POTASSIUM CHLORIDE
     Indication: HYPOKALAEMIA
     Dates: start: 20180813, end: 20180813
  3. MORPHINE [Concomitant]
     Active Substance: MORPHINE
     Dates: start: 20180902, end: 20180903
  4. DEXTROSE;SODIUM CHLORIDE [Concomitant]
     Dates: start: 20180831, end: 20180913
  5. FELODIPINE. [Concomitant]
     Active Substance: FELODIPINE
     Indication: HYPERTENSION
     Dates: start: 20091212, end: 20180913
  6. CALCIUM CARBONATE;CHOLECALCIFEROL;SODIUM [Concomitant]
     Indication: OSTEOPOROSIS
     Dates: start: 20170310, end: 20180913
  7. POTASSIUM CHLORIDE. [Concomitant]
     Active Substance: POTASSIUM CHLORIDE
     Indication: HYPOCHLORAEMIA
     Dates: start: 20180909, end: 20180913
  8. TRASTUZUMAB EMTANSINE [Suspect]
     Active Substance: ADO-TRASTUZUMAB EMTANSINE
     Indication: BREAST CANCER METASTATIC
     Dosage: MOST RECENT DOSE OF TRASTUZUMAB EMTANSINE PRIOR TO AE ONSET WAS ADMINISTERED ON 21/AUG/2018 (313.2 M
     Route: 042
     Dates: start: 20180709
  9. MORPHINE HYDROCHLORIDE [Concomitant]
     Active Substance: MORPHINE HYDROCHLORIDE
     Indication: PAIN IN EXTREMITY
     Dates: start: 20180625, end: 20180913
  10. CEFOPERAZONE SODIUM [Concomitant]
     Active Substance: CEFOPERAZONE SODIUM
     Dates: start: 20180906, end: 20180906
  11. DEXAMETHASONE SODIUM PHOSPHATE. [Concomitant]
     Active Substance: DEXAMETHASONE SODIUM PHOSPHATE
     Dates: start: 20180908, end: 20180912
  12. VITAMIN C [Concomitant]
     Active Substance: ASCORBIC ACID
     Dates: start: 20180910, end: 20180911
  13. IRBESARTAN. [Concomitant]
     Active Substance: IRBESARTAN
     Indication: HYPERTENSION
     Dates: start: 20091212, end: 20180913
  14. SODIUM CHLORIDE. [Concomitant]
     Active Substance: SODIUM CHLORIDE
     Indication: HYPOCHLORAEMIA
     Dosage: COCENTRATED
     Dates: start: 20180903, end: 20180903
  15. POTASSIUM CHLORIDE. [Concomitant]
     Active Substance: POTASSIUM CHLORIDE
     Indication: HYPONATRAEMIA
     Dates: start: 20180907, end: 20180907
  16. TAZOBACTAM SODIUM [Concomitant]
     Active Substance: TAZOBACTAM SODIUM
     Dates: start: 20180906, end: 20180913
  17. DEXAMETHASONE SODIUM PHOSPHATE. [Concomitant]
     Active Substance: DEXAMETHASONE SODIUM PHOSPHATE
     Dates: start: 20180902, end: 20180902
  18. RHUBARB. [Concomitant]
     Active Substance: RHUBARB
     Dates: start: 20180811, end: 20180814
  19. DICLOFENAC SODIUM. [Concomitant]
     Active Substance: DICLOFENAC SODIUM
     Dates: start: 20180912, end: 20180912
  20. FUROSEMIDE. [Concomitant]
     Active Substance: FUROSEMIDE
     Indication: OEDEMA
     Dates: start: 20180813, end: 20180813
  21. PAZUFLOXACIN MESILATE [Concomitant]
     Active Substance: PAZUFLOXACIN MESILATE
     Dates: start: 20180904, end: 20180913
  22. AMRINONE [Concomitant]
     Active Substance: INAMRINONE
     Dates: start: 20180906, end: 20180912
  23. SODIUM CHLORIDE. [Concomitant]
     Active Substance: SODIUM CHLORIDE
     Indication: HYPOKALAEMIA
     Dates: start: 20180813, end: 20180814
  24. AMRINONE [Concomitant]
     Active Substance: INAMRINONE
     Dates: start: 20180903, end: 20180903
  25. CIMETIDINE [Concomitant]
     Active Substance: CIMETIDINE
     Indication: PEPTIC ULCER
     Dates: start: 20180910, end: 20180911
  26. SPIRONOLACTONE. [Concomitant]
     Active Substance: SPIRONOLACTONE
     Indication: OEDEMA
     Dates: start: 20180813, end: 20180813
  27. MORPHINE [Concomitant]
     Active Substance: MORPHINE
     Dates: start: 20180907, end: 20180913
  28. POTASSIUM CHLORIDE. [Concomitant]
     Active Substance: POTASSIUM CHLORIDE
     Dates: start: 20180907, end: 20180913
  29. VITAMIN B6 [Concomitant]
     Active Substance: PYRIDOXINE HYDROCHLORIDE
     Dates: start: 20180904, end: 20180913
  30. CEFOPERAZONE SODIUM [Concomitant]
     Active Substance: CEFOPERAZONE SODIUM
     Dates: start: 20180906, end: 20180913
  31. DEXTROSE;SODIUM CHLORIDE [Concomitant]
     Dates: start: 20180909, end: 20180911
  32. RHUBARB. [Concomitant]
     Active Substance: RHUBARB
     Indication: CONSTIPATION
     Dates: start: 20180905, end: 20180905

REACTIONS (1)
  - Hypoproteinaemia [Unknown]

NARRATIVE: CASE EVENT DATE: 20180831
